FAERS Safety Report 20192143 (Version 1)
Quarter: 2021Q4

REPORT INFORMATION
  Report Type: Spontaneous
  Country: US (occurrence: US)
  Receive Date: 20211216
  Receipt Date: 20211216
  Transmission Date: 20220303
  Serious: No
  Sender: FDA-Public Use
  Company Number: US-ALLERGAN-2048527US

PATIENT
  Age: 40 Year
  Sex: Female

DRUGS (2)
  1. LO LOESTRIN FE [Suspect]
     Active Substance: ETHINYL ESTRADIOL\NORETHINDRONE ACETATE
     Indication: Heavy menstrual bleeding
     Dosage: 1 DF, QD
     Dates: start: 202012
  2. LO LOESTRIN FE [Suspect]
     Active Substance: ETHINYL ESTRADIOL\NORETHINDRONE ACETATE
     Dosage: 2 DF, BID
     Dates: start: 20201207, end: 202012

REACTIONS (6)
  - Off label use [Unknown]
  - Arrhythmia [Unknown]
  - Anaemia [Not Recovered/Not Resolved]
  - Yellow skin [Not Recovered/Not Resolved]
  - Headache [Not Recovered/Not Resolved]
  - Heavy menstrual bleeding [Not Recovered/Not Resolved]

NARRATIVE: CASE EVENT DATE: 20201201
